FAERS Safety Report 18303293 (Version 6)
Quarter: 2022Q2

REPORT INFORMATION
  Report Type: Report from Study
  Country: BE (occurrence: BE)
  Receive Date: 20200923
  Receipt Date: 20220510
  Transmission Date: 20220721
  Serious: Yes (Other)
  Sender: FDA-Public Use
  Company Number: BE-VERTEX PHARMACEUTICALS-2020-017702

PATIENT
  Age: 58 Year
  Sex: Female
  Weight: 47 kg

DRUGS (17)
  1. ELEXACAFTOR\IVACAFTOR\TEZACAFTOR [Suspect]
     Active Substance: ELEXACAFTOR\IVACAFTOR\TEZACAFTOR
     Indication: Cystic fibrosis
     Dosage: 100MG ELEXACAFTOR/ 50MG TEZACAFTOR/ 75MG IVACAFTOR, QD
     Route: 048
     Dates: start: 20200731
  2. ELEXACAFTOR\IVACAFTOR\TEZACAFTOR [Suspect]
     Active Substance: ELEXACAFTOR\IVACAFTOR\TEZACAFTOR
     Dosage: 1 TABLET OF MORNING DOSE ONE DAY ALTERNATIVE WITH 2 TABLETS OF MORNING DOSE
     Route: 048
     Dates: start: 20200831, end: 202101
  3. ELEXACAFTOR\IVACAFTOR\TEZACAFTOR [Suspect]
     Active Substance: ELEXACAFTOR\IVACAFTOR\TEZACAFTOR
     Dosage: 2 MORNING DOSE
     Route: 048
     Dates: start: 20210104
  4. KALYDECO [Suspect]
     Active Substance: IVACAFTOR
     Indication: Cystic fibrosis
     Dosage: 150MG IVACAFTOR, QD
     Route: 048
     Dates: start: 20200731
  5. KALYDECO [Suspect]
     Active Substance: IVACAFTOR
     Dosage: HALF DOSAGE REGIMEN
     Route: 048
     Dates: start: 20200831
  6. KALYDECO [Suspect]
     Active Substance: IVACAFTOR
     Dosage: ONE EVENING TABLET
     Route: 048
     Dates: start: 20210104
  7. AZITHROMYCIN [Suspect]
     Active Substance: AZITHROMYCIN
     Indication: Product used for unknown indication
     Dosage: 500 MILLIGRAM, 3X1 WEEK
     Route: 065
     Dates: end: 2020
  8. PULMOZYME [Concomitant]
     Active Substance: DORNASE ALFA
     Indication: Cystic fibrosis lung
     Dosage: 2.5 MILLILITER, QD
     Dates: start: 20040325
  9. FENOTEROL HYDROBROMIDE [Concomitant]
     Active Substance: FENOTEROL HYDROBROMIDE
     Indication: Bronchial hyperreactivity
     Dosage: 4 MILLILITER, PRN
     Dates: start: 20170517
  10. PANTOMED [Concomitant]
     Indication: Reflux gastritis
     Dosage: 40 MG, QD
     Route: 048
     Dates: start: 20110908
  11. CREON [Concomitant]
     Active Substance: PANCRELIPASE AMYLASE\PANCRELIPASE LIPASE\PANCRELIPASE PROTEASE
     Indication: Pancreatic failure
     Dosage: 10-12 TABLETS/ DAY
     Route: 048
     Dates: start: 1999
  12. VISTA D3 [Concomitant]
     Indication: Pancreatic failure
     Dosage: 1/ MONTH
     Route: 048
     Dates: start: 20190523
  13. NOVORAPID [Concomitant]
     Active Substance: INSULIN ASPART
     Indication: Cystic fibrosis related diabetes
     Dosage: UNK, TID
     Route: 058
     Dates: start: 201709
  14. ASPIRIN [Concomitant]
     Active Substance: ASPIRIN
     Indication: Thrombosis prophylaxis
     Dosage: 80 MG, QD
     Route: 048
     Dates: start: 20190207
  15. ASPIRIN [Concomitant]
     Active Substance: ASPIRIN
  16. FENOTEROL [Concomitant]
     Active Substance: FENOTEROL
  17. HYDROBROMIDE DEXTROMETHORPHAN [Concomitant]

REACTIONS (1)
  - Drug-induced liver injury [Recovered/Resolved]

NARRATIVE: CASE EVENT DATE: 20200820
